FAERS Safety Report 16360991 (Version 2)
Quarter: 2019Q3

REPORT INFORMATION
  Report Type: Spontaneous
  Country: US (occurrence: US)
  Receive Date: 20190528
  Receipt Date: 20190830
  Transmission Date: 20191004
  Serious: Yes (Death, Hospitalization, Other)
  Sender: FDA-Public Use
  Company Number: US-009507513-1905USA011078

PATIENT
  Sex: Male
  Weight: 90.7 kg

DRUGS (2)
  1. JANUVIA [Suspect]
     Active Substance: SITAGLIPTIN PHOSPHATE
     Indication: TYPE 2 DIABETES MELLITUS
     Dosage: 100 MILLIGRAM, QD
     Route: 048
     Dates: start: 2009, end: 20180212
  2. GLIPIZIDE. [Concomitant]
     Active Substance: GLIPIZIDE
     Indication: TYPE 2 DIABETES MELLITUS
     Dosage: UNK

REACTIONS (35)
  - Cardiomyopathy [Unknown]
  - Gout [Not Recovered/Not Resolved]
  - Peritoneal disorder [Unknown]
  - Pathological fracture [Unknown]
  - Night sweats [Unknown]
  - Lactic acidosis [Unknown]
  - Bone lesion [Unknown]
  - Normochromic normocytic anaemia [Unknown]
  - Pleural effusion [Unknown]
  - Muscular weakness [Unknown]
  - Sepsis [Unknown]
  - Nephrolithiasis [Not Recovered/Not Resolved]
  - Blood cholesterol abnormal [Not Recovered/Not Resolved]
  - Ascites [Unknown]
  - Confusional state [Unknown]
  - Oedema peripheral [Unknown]
  - Hypophagia [Unknown]
  - Cough [Unknown]
  - Pancreatic carcinoma metastatic [Fatal]
  - Hyperlipidaemia [Not Recovered/Not Resolved]
  - Rash [Unknown]
  - Chills [Unknown]
  - Hilar lymphadenopathy [Unknown]
  - Hepatomegaly [Unknown]
  - Diastolic dysfunction [Unknown]
  - Fatigue [Unknown]
  - Leukocytosis [Unknown]
  - Pulmonary mass [Unknown]
  - Prostatic calcification [Unknown]
  - Nephrolithiasis [Unknown]
  - Malignant ascites [Unknown]
  - Mitral valve incompetence [Unknown]
  - Hepatic lesion [Unknown]
  - Hypothyroidism [Not Recovered/Not Resolved]
  - Lymphadenopathy [Unknown]

NARRATIVE: CASE EVENT DATE: 2009
